FAERS Safety Report 13823181 (Version 14)
Quarter: 2019Q3

REPORT INFORMATION
  Report Type: Report from Study
  Country: DE (occurrence: DE)
  Receive Date: 20170802
  Receipt Date: 20190905
  Transmission Date: 20191004
  Serious: Yes (Hospitalization, Other)
  Sender: FDA-Public Use
  Company Number: DE-BRISTOL-MYERS SQUIBB COMPANY-BMS-2017-065802

PATIENT
  Age: 60 Year
  Sex: Female

DRUGS (3)
  1. IPILIMUMAB [Suspect]
     Active Substance: IPILIMUMAB
     Indication: MALIGNANT MELANOMA
     Dosage: 192.0 MG, Q3WK
     Route: 042
     Dates: start: 20170331, end: 20170526
  2. NIVOLUMAB [Suspect]
     Active Substance: NIVOLUMAB
     Indication: PRODUCT USED FOR UNKNOWN INDICATION
     Dosage: 64 MILLIGRAM
     Route: 042
     Dates: start: 20170331, end: 20170526
  3. NIVOLUMAB [Suspect]
     Active Substance: NIVOLUMAB
     Indication: MALIGNANT MELANOMA
     Dosage: 192.0 MG, Q3WK
     Route: 042
     Dates: start: 20170609, end: 20170630

REACTIONS (13)
  - Hepatitis viral [Recovered/Resolved]
  - Erysipelas [Recovered/Resolved]
  - Dyspnoea [Unknown]
  - Atrial fibrillation [Not Recovered/Not Resolved]
  - Chest discomfort [Unknown]
  - Transfusion [Unknown]
  - Haemolysis [Recovering/Resolving]
  - Hypothyroidism [Recovered/Resolved with Sequelae]
  - Iliac vein occlusion [Recovered/Resolved]
  - Malignant neoplasm progression [Unknown]
  - Pulmonary hypertension [Recovering/Resolving]
  - Arthritis [Recovered/Resolved with Sequelae]
  - Embolism [Recovered/Resolved]

NARRATIVE: CASE EVENT DATE: 20170512
